FAERS Safety Report 11319858 (Version 1)
Quarter: 2015Q3

REPORT INFORMATION
  Report Type: Spontaneous
  Country: US (occurrence: None)
  Receive Date: 20150728
  Receipt Date: 20150728
  Transmission Date: 20151125
  Serious: Yes (Disabling)
  Sender: FDA-Public Use
  Company Number: None

PATIENT
  Age: 42 Year
  Sex: Female
  Weight: 61.24 kg

DRUGS (2)
  1. ARMOUR THYROID [Concomitant]
     Active Substance: THYROID, PORCINE\THYROID, UNSPECIFIED
  2. LANSOPRAZOLE 15 MG [Suspect]
     Active Substance: LANSOPRAZOLE
     Indication: ABDOMINAL PAIN UPPER
     Dosage: 2 PILLS
     Route: 048
     Dates: start: 20150421, end: 20150710

REACTIONS (4)
  - Micturition urgency [None]
  - Urethral disorder [None]
  - Burning sensation [None]
  - Pollakiuria [None]

NARRATIVE: CASE EVENT DATE: 20150704
